FAERS Safety Report 20605416 (Version 1)
Quarter: 2022Q1

REPORT INFORMATION
  Report Type: Spontaneous
  Country: GR (occurrence: GR)
  Receive Date: 20220317
  Receipt Date: 20220317
  Transmission Date: 20220423
  Serious: Yes (Other)
  Sender: FDA-Public Use
  Company Number: None

PATIENT
  Age: 77 Year
  Sex: Female

DRUGS (1)
  1. CEFUROXIME AXETIL [Suspect]
     Active Substance: CEFUROXIME AXETIL
     Indication: Cataract operation
     Dosage: (OVER 4ML, CONCENTRATION: 1MG/0.1ML)

REACTIONS (4)
  - Retinal haemorrhage [Unknown]
  - Retinal infarction [Unknown]
  - Optic atrophy [Unknown]
  - Incorrect dose administered [Unknown]
